FAERS Safety Report 8156271-1 (Version None)
Quarter: 2012Q1

REPORT INFORMATION
  Report Type: 
  Country: None (occurrence: None)
  Receive Date: 20120103
  Receipt Date: 20110823
  Transmission Date: 20120608
  Serious: No
  Sender: FDA-Public Use
  Company Number: AE-2011-000793

PATIENT
  Age: 36 Year
  Sex: Female
  Weight: 50.8029 kg

DRUGS (3)
  1. RIBAVIRIN [Concomitant]
  2. INCIVEK [Suspect]
     Dosage: (3 IN 1 D)
     Dates: start: 20110708
  3. PEGINTERFERON (PEGINTERFERON ALFA-2A) [Concomitant]

REACTIONS (3)
  - VOMITING [None]
  - NAUSEA [None]
  - RASH GENERALISED [None]
